FAERS Safety Report 9566043 (Version 6)
Quarter: 2014Q3

REPORT INFORMATION
  Report Type: Report from Study
  Country: US (occurrence: US)
  Receive Date: 20130930
  Receipt Date: 20140827
  Transmission Date: 20150326
  Serious: Yes (Hospitalization, Other)
  Sender: FDA-Public Use
  Company Number: US-ALEXION-A201302510

PATIENT

DRUGS (1)
  1. SOLIRIS [Suspect]
     Active Substance: ECULIZUMAB
     Indication: PAROXYSMAL NOCTURNAL HAEMOGLOBINURIA
     Dosage: 900 MG, Q12 DAYS
     Route: 042

REACTIONS (11)
  - Thrombocytopenia [Unknown]
  - Pain [Unknown]
  - Influenza [Unknown]
  - Haemoglobin decreased [Unknown]
  - Liver iron concentration increased [Unknown]
  - Haemoptysis [Unknown]
  - Fatigue [Recovering/Resolving]
  - Cough [Unknown]
  - Asthenia [Recovering/Resolving]
  - Cough [Unknown]
  - Productive cough [Not Recovered/Not Resolved]

NARRATIVE: CASE EVENT DATE: 201309
